FAERS Safety Report 6229789-6 (Version None)
Quarter: 2009Q2

REPORT INFORMATION
  Report Type: 
  Country: None (occurrence: None)
  Receive Date: 20090615
  Receipt Date: 20090603
  Transmission Date: 20091009
  Serious: Yes (Other)
  Sender: FDA-Public Use
  Company Number: US-PFIZER INC-2008093809

PATIENT
  Sex: Female
  Weight: 87.5 kg

DRUGS (18)
  1. LYRICA [Suspect]
     Indication: FIBROMYALGIA
     Dosage: 50 MG, 2X/DAY
     Dates: start: 20080701
  2. LISINOPRIL [Suspect]
     Dosage: 20 MG, 1X/DAY
     Route: 048
  3. LEVOTHYROXINE [Concomitant]
     Indication: HYPOTHYROIDISM
     Dosage: 0.125 MG, 1X/DAY
     Route: 048
  4. PRAVASTATIN [Concomitant]
  5. HYDROCODONE BITARTRATE [Concomitant]
  6. ALPRAZOLAM [Concomitant]
     Dosage: 0.25 MG, 3X/DAY
     Route: 048
  7. CELEXA [Concomitant]
     Dosage: 20 MG, 1X/DAY
  8. DICYCLOMINE HYDROCHLORIDE [Concomitant]
     Dosage: 10 MG, 1X/DAY
  9. LORATADINE [Concomitant]
     Dosage: 10 MG, UNK
  10. LORTAB [Concomitant]
     Dosage: UNK
     Route: 048
  11. LOVASTATIN [Concomitant]
     Dosage: 40 MG, 1X/DAY
  12. MAXZIDE [Concomitant]
     Dosage: 1 UNK, UNK
     Route: 048
  13. FOSAMAX [Concomitant]
     Dosage: 70 MG, WEEKLY
     Route: 048
  14. NAPROXEN [Concomitant]
     Dosage: 220 MG, 1X/DAY
     Route: 048
  15. MULTI-VITAMINS [Concomitant]
     Dosage: UNK
     Route: 048
  16. OMEPRAZOLE [Concomitant]
     Dosage: 20 MG, 1X/DAY
  17. VICODIN ES [Concomitant]
     Dosage: UNK
  18. VITAMIN B-12 [Concomitant]
     Dosage: 1000 UG, MONTHLY

REACTIONS (10)
  - ANAEMIA [None]
  - ANTINUCLEAR ANTIBODY INCREASED [None]
  - DIARRHOEA [None]
  - FLUID RETENTION [None]
  - HYPERKALAEMIA [None]
  - NAUSEA [None]
  - RED BLOOD CELL SEDIMENTATION RATE INCREASED [None]
  - RENAL IMPAIRMENT [None]
  - SURGERY [None]
  - WITHDRAWAL SYNDROME [None]
